FAERS Safety Report 6580802-6 (Version None)
Quarter: 2010Q1

REPORT INFORMATION
  Report Type: 
  Country: None (occurrence: None)
  Receive Date: 20100214
  Receipt Date: 20100202
  Transmission Date: 20100710
  Serious: Yes (Other)
  Sender: FDA-Public Use
  Company Number: US-BRISTOL-MYERS SQUIBB COMPANY-14943674

PATIENT
  Age: 76 Year
  Sex: Female
  Weight: 84 kg

DRUGS (3)
  1. ONGLYZA [Suspect]
     Indication: DIABETES MELLITUS
     Dates: start: 20091202
  2. ZESTRIL [Concomitant]
  3. METFORMIN [Concomitant]

REACTIONS (2)
  - FALL [None]
  - LABYRINTHITIS [None]
